FAERS Safety Report 20493003 (Version 1)
Quarter: 2022Q1

REPORT INFORMATION
  Report Type: Spontaneous
  Country: FR (occurrence: FR)
  Receive Date: 20220220
  Receipt Date: 20220220
  Transmission Date: 20220423
  Serious: Yes (Hospitalization, Other)
  Sender: FDA-Public Use
  Company Number: FR-MLMSERVICE-2020051422974131

PATIENT
  Age: 64 Year
  Sex: Female

DRUGS (8)
  1. CISPLATIN [Suspect]
     Active Substance: CISPLATIN
     Indication: Bladder transitional cell carcinoma stage III
  2. METHOTREXATE [Suspect]
     Active Substance: METHOTREXATE
     Indication: Bladder transitional cell carcinoma stage III
     Dosage: 6 CYCLES
     Route: 065
  3. DOXORUBICIN [Suspect]
     Active Substance: DOXORUBICIN
     Indication: Bladder transitional cell carcinoma stage III
     Dosage: 6 CYCLES
  4. VINBLASTINE [Suspect]
     Active Substance: VINBLASTINE
     Indication: Bladder transitional cell carcinoma stage III
     Dosage: 6 CYCLES
     Route: 065
  5. PEMBROLIZUMAB [Suspect]
     Active Substance: PEMBROLIZUMAB
     Indication: Transitional cell carcinoma
     Dosage: INFUSION
     Route: 050
  6. COTRIMOXAZOLE [Suspect]
     Active Substance: SULFAMETHOXAZOLE\TRIMETHOPRIM
     Indication: Hypersensitivity pneumonitis
     Dosage: UNK
     Route: 065
  7. GEMCITABINE [Concomitant]
     Active Substance: GEMCITABINE
     Indication: Transitional cell carcinoma
     Dosage: 6 CYCLES
     Route: 065
  8. PACLITAXEL [Concomitant]
     Active Substance: PACLITAXEL
     Indication: Transitional cell carcinoma
     Dosage: 6 CYCLES
     Route: 065

REACTIONS (7)
  - Neutropenia [Recovered/Resolved]
  - Nausea [Unknown]
  - Hypersensitivity pneumonitis [Recovering/Resolving]
  - Toxic skin eruption [Recovered/Resolved]
  - Lung disorder [Recovering/Resolving]
  - Drug eruption [Recovered/Resolved]
  - Off label use [Unknown]
